FAERS Safety Report 6639426-4 (Version None)
Quarter: 2010Q1

REPORT INFORMATION
  Report Type: 
  Country: None (occurrence: None)
  Receive Date: 20100315
  Receipt Date: 20100301
  Transmission Date: 20100710
  Serious: Yes (Other)
  Sender: FDA-Public Use
  Company Number: US-1181075

PATIENT
  Sex: Female

DRUGS (1)
  1. VIGAMOX [Suspect]
     Indication: CONJUNCTIVITIS
     Dosage: OPHTHALMIC
     Route: 047

REACTIONS (1)
  - STEVENS-JOHNSON SYNDROME [None]
